FAERS Safety Report 8379942 (Version 3)
Quarter: 2013Q1

REPORT INFORMATION
  Report Type: Spontaneous
  Country: CA (occurrence: CA)
  Receive Date: 20120131
  Receipt Date: 20130329
  Transmission Date: 20140127
  Serious: Yes (Other)
  Sender: FDA-Public Use
  Company Number: CA-JNJFOC-20120113001

PATIENT
  Sex: Female
  Weight: 72 kg

DRUGS (4)
  1. REMICADE [Suspect]
     Indication: CROHN^S DISEASE
     Dosage: ^TO THE PRESENT^
     Route: 042
     Dates: start: 20051103
  2. IMURAN [Concomitant]
     Indication: CROHN^S DISEASE
     Route: 048
  3. SULPHASALAZINE [Concomitant]
     Indication: CROHN^S DISEASE
     Route: 048
  4. APO-DOXAZOSIN [Concomitant]
     Route: 048

REACTIONS (1)
  - Adrenal neoplasm [Recovering/Resolving]
